FAERS Safety Report 5755658-1 (Version None)
Quarter: 2008Q2

REPORT INFORMATION
  Report Type: 
  Country: None (occurrence: None)
  Receive Date: 20080530
  Receipt Date: 20080530
  Transmission Date: 20081010
  Serious: Yes (Hospitalization)
  Sender: FDA-Public Use
  Company Number: None

PATIENT
  Age: 47 Year
  Sex: Female

DRUGS (1)
  1. CHOLETEC [Suspect]
     Indication: HEPATOBILIARY SCAN
     Dosage: ONE TIME
     Dates: start: 20080307, end: 20080307

REACTIONS (4)
  - COUGH [None]
  - DYSPNOEA [None]
  - HYPERSENSITIVITY [None]
  - WHEEZING [None]
